FAERS Safety Report 21863290 (Version 3)
Quarter: 2023Q1

REPORT INFORMATION
  Report Type: Spontaneous
  Country: AR (occurrence: AR)
  Receive Date: 20230115
  Receipt Date: 20230127
  Transmission Date: 20230417
  Serious: Yes (Hospitalization, Other)
  Sender: FDA-Public Use
  Company Number: AR-002147023-NVSC2023AR005366

PATIENT
  Sex: Female

DRUGS (2)
  1. KISQALI [Suspect]
     Active Substance: RIBOCICLIB
     Indication: Bone cancer
     Dosage: 600 MG, QD (3 OF 200 MG, IN THE MORNING)
     Route: 048
     Dates: start: 20230101
  2. KISQALI [Suspect]
     Active Substance: RIBOCICLIB
     Indication: Breast cancer metastatic

REACTIONS (5)
  - White blood cell count increased [Unknown]
  - Neutrophil count increased [Unknown]
  - Stress [Unknown]
  - Electrocardiogram QT prolonged [Unknown]
  - Chest discomfort [Unknown]
